FAERS Safety Report 16246565 (Version 2)
Quarter: 2020Q2

REPORT INFORMATION
  Report Type: Spontaneous
  Country: US (occurrence: US)
  Receive Date: 20190427
  Receipt Date: 20200611
  Transmission Date: 20200713
  Serious: Yes (Death, Hospitalization, Other)
  Sender: FDA-Public Use
  Company Number: US-JNJFOC-20190422583

PATIENT
  Age: 49 Year
  Sex: Female

DRUGS (2)
  1. XARELTO [Suspect]
     Active Substance: RIVAROXABAN
     Indication: ANTICOAGULANT THERAPY
     Route: 048
  2. XARELTO [Suspect]
     Active Substance: RIVAROXABAN
     Route: 048
     Dates: start: 2017

REACTIONS (2)
  - Haemorrhage [Unknown]
  - Lower gastrointestinal haemorrhage [Fatal]

NARRATIVE: CASE EVENT DATE: 2017
